FAERS Safety Report 11807732 (Version 1)
Quarter: 2015Q4

REPORT INFORMATION
  Report Type: Other
  Country: CA (occurrence: CA)
  Receive Date: 20151207
  Receipt Date: 20151207
  Transmission Date: 20160305
  Serious: Yes (Hospitalization, Other)
  Sender: FDA-Public Use
  Company Number: CA-APOTEX-2015AP014955

PATIENT
  Age: 44 Year
  Sex: Female
  Weight: 104 kg

DRUGS (2)
  1. APO-AMOXI CLAV [Suspect]
     Active Substance: AMOXICILLIN\CLAVULANATE POTASSIUM
     Indication: SINUSITIS
     Dosage: 1 DF, BID
     Route: 048
  2. NOVO-PRANOL [Suspect]
     Active Substance: PROPRANOLOL HYDROCHLORIDE
     Indication: MIGRAINE
     Dosage: 20 MG, BID
     Route: 048

REACTIONS (11)
  - Heart rate decreased [Recovered/Resolved]
  - Abdominal pain upper [Recovered/Resolved]
  - Hypersensitivity [Recovered/Resolved]
  - Pruritus [Recovered/Resolved]
  - Dyspepsia [Recovered/Resolved]
  - Myocardial infarction [Recovered/Resolved]
  - Myocardial necrosis marker increased [Recovered/Resolved]
  - Drug interaction [Recovered/Resolved]
  - Ear swelling [Recovered/Resolved]
  - Urticaria [Recovered/Resolved]
  - Headache [Recovered/Resolved]
